FAERS Safety Report 23591431 (Version 2)
Quarter: 2024Q3

REPORT INFORMATION
  Report Type: Report from Study
  Country: US (occurrence: US)
  Receive Date: 20240304
  Receipt Date: 20240910
  Transmission Date: 20241016
  Serious: Yes (Other)
  Sender: PFIZER
  Company Number: US-PFIZER INC-PV202400028743

PATIENT

DRUGS (1)
  1. METHOTREXATE SODIUM [Suspect]
     Active Substance: METHOTREXATE SODIUM
     Indication: Cutaneous T-cell lymphoma
     Dosage: UNK

REACTIONS (5)
  - Dermatitis [Unknown]
  - Skin hyperpigmentation [Unknown]
  - Decreased appetite [Unknown]
  - Soft tissue disorder [Unknown]
  - Pain [Unknown]
